FAERS Safety Report 4648009-7 (Version None)
Quarter: 2005Q2

REPORT INFORMATION
  Report Type: 
  Country: None (occurrence: None)
  Receive Date: 20050331
  Receipt Date: 20050217
  Transmission Date: 20051028
  Serious: No
  Sender: FDA-Public Use
  Company Number: 05P-163-0286790-00

PATIENT
  Age: 66 Year
  Sex: Female
  Weight: 66.6788 kg

DRUGS (13)
  1. HUMIRA [Suspect]
     Indication: RHEUMATOID ARTHRITIS
     Dosage: 40 MG,1 IN 2 WK, SUBCUTANEOUS
     Route: 058
     Dates: start: 20030601
  2. PREDNISONE TAB [Concomitant]
  3. OMEPRAZOLE [Concomitant]
  4. AMLODIPINE BESYLATE [Concomitant]
  5. ENALAPRIL MALEATE [Concomitant]
  6. CALCIUM GLUCONATE [Concomitant]
  7. ALENDRONATE SODIUM [Concomitant]
  8. RISEDRONATE SODIUM [Concomitant]
  9. FUROSEMIDE [Concomitant]
  10. SULFASALAZINE [Concomitant]
  11. ONE-A-DAY [Concomitant]
  12. ASPIRIN [Concomitant]
  13. LINSEED OIL [Concomitant]

REACTIONS (4)
  - CATARACT [None]
  - CONDITION AGGRAVATED [None]
  - PAIN IN EXTREMITY [None]
  - WEIGHT INCREASED [None]
